FAERS Safety Report 9862729 (Version 1)
Quarter: 2014Q1

REPORT INFORMATION
  Report Type: Spontaneous
  Country: US (occurrence: US)
  Receive Date: 20140203
  Receipt Date: 20140203
  Transmission Date: 20141002
  Serious: Yes (Death)
  Sender: FDA-Public Use
  Company Number: CHPA2014US001444

PATIENT
  Age: 80 Year
  Sex: Female

DRUGS (3)
  1. ACETAMINOPHEN (PARACETAMOL) [Suspect]
  2. CARBON MONOXIDE [Suspect]
  3. TRAMADOL [Suspect]

REACTIONS (1)
  - Environmental exposure [Fatal]
